FAERS Safety Report 11258845 (Version 1)
Quarter: 2015Q3

REPORT INFORMATION
  Report Type: Spontaneous
  Country: US (occurrence: US)
  Receive Date: 20150710
  Receipt Date: 20150710
  Transmission Date: 20151125
  Serious: No
  Sender: FDA-Public Use
  Company Number: US-PFIZER INC-2015226458

PATIENT
  Age: 59 Year
  Sex: Male
  Weight: 56 kg

DRUGS (19)
  1. XANAX [Suspect]
     Active Substance: ALPRAZOLAM
     Indication: ANXIETY
     Dosage: 1 MG, 2X/DAY
     Route: 048
     Dates: start: 20150108
  2. ZESTRIL [Concomitant]
     Active Substance: LISINOPRIL
     Dosage: 20 MG, DAILY
     Route: 048
  3. ASPIRIN. [Concomitant]
     Active Substance: ASPIRIN
     Dosage: 325 MG, UNK
     Route: 048
  4. XANAX [Suspect]
     Active Substance: ALPRAZOLAM
     Dosage: 1 MG, 3X/DAY
     Route: 048
  5. SPIRIVA [Suspect]
     Active Substance: TIOTROPIUM BROMIDE MONOHYDRATE
     Dosage: 18 ?G, UNK (INH CAPS)
     Dates: start: 20150226
  6. LIPITOR [Suspect]
     Active Substance: ATORVASTATIN CALCIUM
     Dosage: 40 MG, DAILY
     Route: 048
  7. PROVENTIL [Concomitant]
     Active Substance: ALBUTEROL
     Dosage: UNK(2 PUFFS EVERY 6 HOURS AS NEEDED)
  8. PRINIVIL [Concomitant]
     Active Substance: LISINOPRIL
     Dosage: 20 MG, DAILY
     Route: 048
  9. OXYCODONE [Concomitant]
     Active Substance: OXYCODONE
     Dosage: 10 UNK, UNK (10-20MG EVERY 4 HOURS AS NEEDED)
     Route: 048
  10. SODIUM CHLORIDE. [Concomitant]
     Active Substance: SODIUM CHLORIDE
     Dosage: 4 G, 2X/DAY
     Route: 048
     Dates: start: 20150226
  11. LOPRESSOR [Concomitant]
     Active Substance: METOPROLOL TARTRATE
     Dosage: 50 MG, 2X/DAY
     Route: 048
  12. MS CONTIN [Concomitant]
     Active Substance: MORPHINE SULFATE
     Dosage: 60 MG, 2X/DAY
     Route: 048
  13. MS CONTIN [Concomitant]
     Active Substance: MORPHINE SULFATE
     Dosage: 30 MG EVERY 8 HOURS
     Route: 048
  14. ORAMORPH [Concomitant]
     Active Substance: MORPHINE SULFATE
     Dosage: 30 MG EVERY 8 HOURS
  15. XANAX [Suspect]
     Active Substance: ALPRAZOLAM
     Dosage: 1 MG, 4X/DAY
     Route: 048
     Dates: start: 20150226
  16. VIAGRA [Suspect]
     Active Substance: SILDENAFIL CITRATE
     Dosage: 50 MG, AS NEEDED (1 TAB AS NEEDED)
     Route: 048
  17. REMERON [Concomitant]
     Active Substance: MIRTAZAPINE
     Dosage: 45 MG, UNK(AT BEDTIME)
     Route: 048
  18. ORAMORPH [Concomitant]
     Active Substance: MORPHINE SULFATE
     Dosage: 60 MG, 2X/DAY
     Route: 048
  19. VENTOLIN [Concomitant]
     Active Substance: ALBUTEROL SULFATE
     Dosage: UNK(2 PUFFS EVERY 6 HOURS AS NEEDED)

REACTIONS (2)
  - Insomnia [Unknown]
  - Middle insomnia [Unknown]
